FAERS Safety Report 25802023 (Version 2)
Quarter: 2025Q4

REPORT INFORMATION
  Report Type: Spontaneous
  Country: US (occurrence: None)
  Receive Date: 20250915
  Receipt Date: 20251230
  Transmission Date: 20260117
  Serious: No
  Sender: APOTEX
  Company Number: US-APOTEX-2025AP029586

PATIENT
  Sex: Male

DRUGS (1)
  1. ICOSAPENT [Suspect]
     Active Substance: ICOSAPENT
     Indication: Product used for unknown indication
     Dosage: 2 DOSAGE FORM, BID
     Route: 061
     Dates: start: 202508

REACTIONS (4)
  - Nasopharyngitis [Unknown]
  - Product dose omission issue [Unknown]
  - Product physical issue [Unknown]
  - Product with quality issue administered [Unknown]

NARRATIVE: CASE EVENT DATE: 20250101
